FAERS Safety Report 16093410 (Version 1)
Quarter: 2019Q1

REPORT INFORMATION
  Report Type: Spontaneous
  Country: BE (occurrence: BE)
  Receive Date: 20190320
  Receipt Date: 20190320
  Transmission Date: 20190418
  Serious: Yes (Death)
  Sender: FDA-Public Use
  Company Number: BE-ROCHE-2284056

PATIENT
  Age: 14 Year
  Sex: Female

DRUGS (1)
  1. DIAZEPAM. [Suspect]
     Active Substance: DIAZEPAM
     Indication: SEDATION
     Dosage: 3 TABLETS FOLLOWED BY 4 TABLETS A FEW HOURS LATER
     Route: 065
     Dates: start: 20170725, end: 20170725

REACTIONS (4)
  - Intentional product misuse [Fatal]
  - Asphyxia [Fatal]
  - Homicide [Fatal]
  - Overdose [Fatal]

NARRATIVE: CASE EVENT DATE: 20170725
